FAERS Safety Report 7933974-2 (Version None)
Quarter: 2011Q4

REPORT INFORMATION
  Report Type: 
  Country: None (occurrence: None)
  Receive Date: 20111122
  Receipt Date: 20100114
  Transmission Date: 20120403
  Serious: Yes (Hospitalization, Other)
  Sender: FDA-Public Use
  Company Number: PHHY2010TW17429

PATIENT
  Sex: Male

DRUGS (3)
  1. GLEEVEC [Suspect]
     Dosage: 300 MG, UNK
     Dates: end: 20100201
  2. LOW-VISCOSITY PATCH [Concomitant]
     Dosage: UNK
     Route: 065
  3. GLEEVEC [Suspect]
     Indication: GASTROINTESTINAL STROMAL TUMOUR
     Dosage: 400 MG,
     Dates: start: 20091113

REACTIONS (13)
  - PAIN IN EXTREMITY [None]
  - CONSTIPATION [None]
  - DIARRHOEA [None]
  - OEDEMA [None]
  - SKIN EXFOLIATION [None]
  - VOMITING [None]
  - BLOOD POTASSIUM ABNORMAL [None]
  - HAEMOGLOBIN DECREASED [None]
  - DECREASED APPETITE [None]
  - ASTHENIA [None]
  - BLOOD SODIUM ABNORMAL [None]
  - NAUSEA [None]
  - PRURITUS [None]
